FAERS Safety Report 4992768-0 (Version None)
Quarter: 2006Q2

REPORT INFORMATION
  Report Type: 
  Country: None (occurrence: None)
  Receive Date: 20060504
  Receipt Date: 20060426
  Transmission Date: 20061013
  Serious: Yes (Hospitalization)
  Sender: FDA-Public Use
  Company Number: US-ABBOTT-06P-163-0331917-00

PATIENT
  Sex: Male
  Weight: 56.75 kg

DRUGS (2)
  1. DEPAKOTE ER [Suspect]
     Indication: MIGRAINE
     Route: 048
     Dates: start: 20060130, end: 20060207
  2. MIRTAZAPINE [Interacting]
     Indication: DEPRESSION
     Route: 048
     Dates: start: 20041101, end: 20060207

REACTIONS (4)
  - DRUG INTERACTION [None]
  - OCULAR ICTERUS [None]
  - PALPITATIONS [None]
  - YELLOW SKIN [None]
